FAERS Safety Report 10405932 (Version 1)
Quarter: 2014Q3

REPORT INFORMATION
  Report Type: Spontaneous
  Country: US (occurrence: None)
  Receive Date: 20140821
  Receipt Date: 20140821
  Transmission Date: 20150326
  Serious: Yes (Death, Hospitalization)
  Sender: FDA-Public Use
  Company Number: CC400228383

PATIENT
  Age: 17 Year
  Sex: Female

DRUGS (4)
  1. FENTANYL. [Concomitant]
     Active Substance: FENTANYL
  2. HYDROMORPHONE [Concomitant]
     Active Substance: HYDROMORPHONE
  3. CEFTRIAXONE. [Suspect]
     Active Substance: CEFTRIAXONE
     Indication: PNEUMONIA
  4. AZITHROMYCIN [Concomitant]
     Active Substance: AZITHROMYCIN ANHYDROUS

REACTIONS (22)
  - Haemolytic anaemia [None]
  - Chest pain [None]
  - Hepatitis [None]
  - Tachycardia [None]
  - Liver palpable subcostal [None]
  - Electrolyte imbalance [None]
  - Continuous haemodiafiltration [None]
  - Respiratory failure [None]
  - Renal failure [None]
  - Hepatic failure [None]
  - Cardiac arrest [None]
  - Dyspnoea [None]
  - Tachypnoea [None]
  - Altered state of consciousness [None]
  - Haemodynamic instability [None]
  - Spleen palpable [None]
  - Lung infiltration [None]
  - Confusional state [None]
  - Cardiac murmur [None]
  - Acute chest syndrome [None]
  - Oxygen saturation decreased [None]
  - Blood urine present [None]
